FAERS Safety Report 14854762 (Version 4)
Quarter: 2019Q2

REPORT INFORMATION
  Report Type: Report from Study
  Country: DE (occurrence: DE)
  Receive Date: 20180507
  Receipt Date: 20190515
  Transmission Date: 20190711
  Serious: Yes (Other)
  Sender: FDA-Public Use
  Company Number: DE-MYLANLABS-2018M1029311

PATIENT
  Sex: Female
  Weight: 88 kg

DRUGS (8)
  1. KISQALI [Suspect]
     Active Substance: RIBOCICLIB
     Dosage: 400 MG, QD (200MG X 2)
     Route: 048
     Dates: start: 20180511
  2. KISQALI [Suspect]
     Active Substance: RIBOCICLIB
     Dosage: 400 MILLIGRAM, QD(400 MG, QD (200MG X 2))
     Route: 048
     Dates: start: 20180510
  3. ANASTROZOLE. [Suspect]
     Active Substance: ANASTROZOLE
     Indication: BREAST CANCER METASTATIC
     Dosage: 1 MILLIGRAM, QD
     Route: 048
     Dates: start: 20180118
  4. KISQALI [Suspect]
     Active Substance: RIBOCICLIB
     Indication: BREAST CANCER METASTATIC
     Dosage: 200 MG, QD
     Route: 048
     Dates: start: 20180118, end: 20180208
  5. KISQALI [Suspect]
     Active Substance: RIBOCICLIB
     Dosage: 600 MG(200X3), QD
     Route: 048
     Dates: start: 20180216, end: 20180228
  6. ANASTROZOLE. [Suspect]
     Active Substance: ANASTROZOLE
     Dosage: 1 MILLIGRAM, QD
     Route: 048
     Dates: start: 20180115
  7. KISQALI [Suspect]
     Active Substance: RIBOCICLIB
     Dosage: 600 MG(200X3), QD
     Route: 048
     Dates: start: 20180115, end: 20180208
  8. KISQALI [Suspect]
     Active Substance: RIBOCICLIB
     Dosage: 400 MG, QD
     Route: 048
     Dates: start: 20180301, end: 20180412

REACTIONS (4)
  - Leukopenia [Recovering/Resolving]
  - Gamma-glutamyltransferase increased [Recovering/Resolving]
  - Hepatic lesion [Unknown]
  - Neutropenia [Recovering/Resolving]

NARRATIVE: CASE EVENT DATE: 20180208
